FAERS Safety Report 17386897 (Version 1)
Quarter: 2020Q1

REPORT INFORMATION
  Report Type: Spontaneous
  Country: CA (occurrence: CA)
  Receive Date: 20200206
  Receipt Date: 20200206
  Transmission Date: 20200409
  Serious: Yes (Hospitalization)
  Sender: FDA-Public Use
  Company Number: NVSC2020CA028235

PATIENT
  Sex: Male

DRUGS (1)
  1. SANDOZ CIPROFLOXACIN [Suspect]
     Active Substance: CIPROFLOXACIN
     Indication: URINARY TRACT INFECTION
     Dosage: 500 MG, 14 PILLS TO BE TAKEN BID
     Route: 065

REACTIONS (6)
  - Nerve injury [Unknown]
  - Arthralgia [Unknown]
  - Quality of life decreased [Unknown]
  - Anxiety [Unknown]
  - Pneumonitis [Unknown]
  - Depression [Unknown]
